FAERS Safety Report 14502293 (Version 2)
Quarter: 2018Q1

REPORT INFORMATION
  Report Type: Report from Study
  Country: CN (occurrence: CN)
  Receive Date: 20180208
  Receipt Date: 20180223
  Transmission Date: 20180509
  Serious: No
  Sender: FDA-Public Use
  Company Number: CN-ROCHE-2064786

PATIENT

DRUGS (2)
  1. ALTEPLASE. [Suspect]
     Active Substance: ALTEPLASE
     Dosage: REST 90% DOSE OF 0.9MG/KG WAS ADDED INTO 100 ML NORMAL SALINE, AND FINISHED THE INTRAVENOUS DRIP IN
     Route: 041
  2. ALTEPLASE. [Suspect]
     Active Substance: ALTEPLASE
     Indication: CEREBRAL INFARCTION
     Dosage: 10% DOSE OF 0.9MG/KG WAS GIVEN WITHIN 5 MINUTES
     Route: 040

REACTIONS (3)
  - Intentional product use issue [Unknown]
  - Off label use [Unknown]
  - No adverse event [Unknown]
